FAERS Safety Report 4452871-0 (Version None)
Quarter: 2004Q3

REPORT INFORMATION
  Report Type: 
  Country: None (occurrence: None)
  Receive Date: 20040916
  Receipt Date: 20040907
  Transmission Date: 20050211
  Serious: Yes (Hospitalization)
  Sender: FDA-Public Use
  Company Number: K200401363

PATIENT
  Age: 56 Year
  Sex: Female

DRUGS (1)
  1. LORABID [Suspect]
     Indication: UPPER RESPIRATORY TRACT INFECTION
     Dosage: SEE IMAGE
     Route: 048

REACTIONS (7)
  - ANTIBODY TEST POSITIVE [None]
  - BONE MARROW DEPRESSION [None]
  - CHEST DISCOMFORT [None]
  - DYSPNOEA [None]
  - PETECHIAE [None]
  - THROMBOCYTOPENIA [None]
  - WHEEZING [None]
